FAERS Safety Report 7878748-6 (Version None)
Quarter: 2011Q4

REPORT INFORMATION
  Report Type: 
  Country: None (occurrence: None)
  Receive Date: 20111101
  Receipt Date: 20111025
  Transmission Date: 20120403
  Serious: Yes (Hospitalization, Other)
  Sender: FDA-Public Use
  Company Number: CA-BAYER-2011-103684

PATIENT
  Age: 45 Year
  Sex: Female

DRUGS (1)
  1. MIRENA [Suspect]
     Dosage: 20 MCG/24HR, CONT
     Route: 015
     Dates: start: 20110401, end: 20110901

REACTIONS (4)
  - PELVIC INFLAMMATORY DISEASE [None]
  - PAIN [None]
  - FEELING ABNORMAL [None]
  - LOSS OF CONSCIOUSNESS [None]
